FAERS Safety Report 16543117 (Version 7)
Quarter: 2021Q1

REPORT INFORMATION
  Report Type: Report from Study
  Country: US (occurrence: US)
  Receive Date: 20190709
  Receipt Date: 20210205
  Transmission Date: 20210419
  Serious: Yes (Other)
  Sender: FDA-Public Use
  Company Number: PHHY2019US154849

PATIENT
  Age: 14 Year
  Sex: Female

DRUGS (4)
  1. FLUDARABINE [Concomitant]
     Active Substance: FLUDARABINE PHOSPHATE
     Indication: CHEMOTHERAPY
     Dosage: UNK
     Route: 065
  2. KYMRIAH [Suspect]
     Active Substance: TISAGENLECLEUCEL
     Indication: ACUTE LYMPHOCYTIC LEUKAEMIA
  3. CYCLOPHOSPHAMIDE. [Concomitant]
     Active Substance: CYCLOPHOSPHAMIDE
     Indication: CHEMOTHERAPY
     Dosage: UNK
     Route: 065
  4. KYMRIAH [Suspect]
     Active Substance: TISAGENLECLEUCEL
     Indication: B-CELL TYPE ACUTE LEUKAEMIA
     Dosage: UNK, ONCE/SINGLE (0.8?108 CAR?POSITIVE VIABLE T CELLS)
     Route: 041
     Dates: start: 20181219

REACTIONS (10)
  - Second primary malignancy [Unknown]
  - Malignant neoplasm progression [Unknown]
  - Haemoglobin decreased [Unknown]
  - Haematocrit decreased [Unknown]
  - Treatment failure [Unknown]
  - Platelet count decreased [Recovered/Resolved]
  - Myelodysplastic syndrome [Unknown]
  - Acute lymphocytic leukaemia recurrent [Unknown]
  - Cytokine release syndrome [Recovered/Resolved]
  - Pyrexia [Unknown]
